FAERS Safety Report 10228189 (Version 1)
Quarter: 2014Q1

REPORT INFORMATION
  Report Type: Spontaneous
  Country: US (occurrence: None)
  Receive Date: 20140306
  Receipt Date: 20140306
  Transmission Date: 20141002
  Serious: Yes (Hospitalization)
  Sender: FDA-Public Use
  Company Number: 163-21880-13053436

PATIENT
  Age: 96 Year
  Sex: Female

DRUGS (13)
  1. REVLIMID (LENALIDOMIDE) (5 MILLIGRAM, CAPSULES) [Suspect]
     Indication: PLASMA CELL MYELOMA
     Dosage: 5 MG, 1 IN 1 D, PO
     Route: 048
     Dates: start: 201201, end: 2012
  2. DEXAMETHASONE (DEXAMETHASONE) (UNKNOWN) [Concomitant]
  3. LEVOTHYROXINE (LEVOTHYROXINE) (UNKNOWN) [Concomitant]
  4. CLARITIN (LORATADINE) (UNKNOWN) [Concomitant]
  5. METRONIDAZOLE (METRONIDAZOLE) (UNKNOWN) [Concomitant]
  6. CULTURELLE (CULTURELLE) (TABLETS) [Concomitant]
  7. LORATADINE (LORATADINE) (UNKNOWN) [Concomitant]
  8. VICODIN (VICODIN) (UNKNOWN) [Concomitant]
  9. XANAX (ALPRAZOLAM) (UNKNOWN) [Concomitant]
  10. POTASSIUM CHLORIDE (POTASSIUM CHLORIDE) (UNKNOWN) [Concomitant]
  11. PROBIOTIC (BIFIDOBACTERIUM LACTIS) (UNKNOWN) [Concomitant]
  12. BICARB PILLS (SODIUM BICARBONATE) (PILL) [Concomitant]
  13. HEPARIN (HEPARIN) (INJECTION) [Concomitant]

REACTIONS (2)
  - Bronchiolitis [None]
  - Clostridium difficile colitis [None]
